FAERS Safety Report 17516502 (Version 2)
Quarter: 2020Q2

REPORT INFORMATION
  Report Type: Spontaneous
  Country: US (occurrence: US)
  Receive Date: 20200309
  Receipt Date: 20200414
  Transmission Date: 20200713
  Serious: No
  Sender: FDA-Public Use
  Company Number: US-PFIZER INC-2020100621

PATIENT
  Age: 59 Year
  Sex: Female

DRUGS (1)
  1. XELJANZ XR [Suspect]
     Active Substance: TOFACITINIB CITRATE
     Indication: RHEUMATOID ARTHRITIS
     Dosage: 11 MG, DAILY
     Route: 048
     Dates: start: 20190812

REACTIONS (7)
  - Memory impairment [Unknown]
  - Food craving [Unknown]
  - Product dose omission [Unknown]
  - Peripheral swelling [Unknown]
  - Flatulence [Unknown]
  - Pain [Unknown]
  - Eating disorder [Unknown]
